FAERS Safety Report 23128341 (Version 2)
Quarter: 2023Q4

REPORT INFORMATION
  Report Type: Report from Study
  Country: CA (occurrence: CA)
  Receive Date: 20231031
  Receipt Date: 20231116
  Transmission Date: 20240109
  Serious: Yes (Hospitalization)
  Sender: FDA-Public Use
  Company Number: CA-JNJFOC-20231065653

PATIENT
  Age: 60 Year
  Sex: Female

DRUGS (25)
  1. MACITENTAN [Suspect]
     Active Substance: MACITENTAN
     Indication: Pulmonary hypertension
     Route: 048
     Dates: start: 20200130
  2. MACITENTAN [Suspect]
     Active Substance: MACITENTAN
     Indication: Pulmonary hypertension
  3. EPOPROSTENOL SODIUM [Suspect]
     Active Substance: EPOPROSTENOL SODIUM
     Indication: Pulmonary hypertension
     Route: 042
     Dates: start: 20210917
  4. EPOPROSTENOL SODIUM [Suspect]
     Active Substance: EPOPROSTENOL SODIUM
     Indication: Pulmonary hypertension
     Route: 042
     Dates: start: 20210917
  5. REVATIO [Concomitant]
     Active Substance: SILDENAFIL CITRATE
  6. METOPROLOL [Concomitant]
     Active Substance: METOPROLOL
  7. LEVOTHYROXINE [Concomitant]
     Active Substance: LEVOTHYROXINE
  8. ROSUVASTATIN [Concomitant]
     Active Substance: ROSUVASTATIN
  9. OZEMPIC [Concomitant]
     Active Substance: SEMAGLUTIDE
  10. ENOXAPARIN [Concomitant]
     Active Substance: ENOXAPARIN
  11. AMITRIPTYLINE [Concomitant]
     Active Substance: AMITRIPTYLINE
  12. CALCIUM CARBONATE [Concomitant]
     Active Substance: CALCIUM CARBONATE
  13. LOPERAMIDE [Concomitant]
     Active Substance: LOPERAMIDE
  14. PANTOPRAZOLE [Concomitant]
     Active Substance: PANTOPRAZOLE
  15. COLCHICINE [Concomitant]
     Active Substance: COLCHICINE
  16. HYDROMORPHONE [Concomitant]
     Active Substance: HYDROMORPHONE
  17. MAGNESIUM [Concomitant]
     Active Substance: MAGNESIUM
  18. ONDANSETRON [Concomitant]
     Active Substance: ONDANSETRON
  19. CEFTRIAXONE [Concomitant]
     Active Substance: CEFTRIAXONE\CEFTRIAXONE SODIUM
  20. FUROSEMIDE [Concomitant]
     Active Substance: FUROSEMIDE
  21. CHOLECALCIFEROL [Concomitant]
     Active Substance: CHOLECALCIFEROL
  22. ASPIRIN [Concomitant]
     Active Substance: ASPIRIN
  23. MELATONIN [Concomitant]
     Active Substance: MELATONIN
  24. CITALOPRAM [Concomitant]
     Active Substance: CITALOPRAM HYDROBROMIDE
  25. SPIRONOLACTONE [Concomitant]
     Active Substance: SPIRONOLACTONE

REACTIONS (4)
  - Hospitalisation [Unknown]
  - Therapy change [Unknown]
  - Infection [Recovered/Resolved]
  - Arthralgia [Not Recovered/Not Resolved]

NARRATIVE: CASE EVENT DATE: 20231001
